FAERS Safety Report 8160096-0 (Version None)
Quarter: 2012Q1

REPORT INFORMATION
  Report Type: 
  Country: None (occurrence: None)
  Receive Date: 20120223
  Receipt Date: 20120215
  Transmission Date: 20120608
  Serious: Yes (Other)
  Sender: FDA-Public Use
  Company Number: US-PFIZER INC-2011068169

PATIENT
  Sex: Female
  Weight: 81.633 kg

DRUGS (6)
  1. EFFEXOR XR [Suspect]
     Indication: ANXIETY
  2. EFFEXOR XR [Suspect]
     Indication: DEPRESSION
     Dosage: 150 MG, 1X/DAY
     Route: 048
     Dates: start: 20080101, end: 20120212
  3. CLONAZEPAM [Concomitant]
     Indication: ANXIETY
     Dosage: 2MG TO 4MG, AS NEEDED
  4. CLONAZEPAM [Concomitant]
     Indication: PANIC ATTACK
  5. ALBUTEROL SULFATE [Concomitant]
     Indication: ASTHMA
     Dosage: UNK
  6. QVAR 40 [Concomitant]
     Indication: ASTHMA
     Dosage: UNK

REACTIONS (9)
  - VERTIGO [None]
  - MALAISE [None]
  - PANIC ATTACK [None]
  - ACTIVITIES OF DAILY LIVING IMPAIRED [None]
  - NAUSEA [None]
  - DEPRESSION [None]
  - FIBROMYALGIA [None]
  - DIZZINESS [None]
  - AGITATION [None]
